FAERS Safety Report 5325302-6 (Version None)
Quarter: 2007Q2

REPORT INFORMATION
  Report Type: 
  Country: None (occurrence: None)
  Receive Date: 20070515
  Receipt Date: 20070507
  Transmission Date: 20071010
  Serious: Yes (Hospitalization)
  Sender: FDA-Public Use
  Company Number: US-ELI_LILLY_AND_COMPANY-US200705001623

PATIENT
  Sex: Female

DRUGS (4)
  1. FORTEO [Suspect]
     Indication: OSTEOPOROSIS
     Dates: start: 20070412
  2. BETA BLOCKING AGENTS [Concomitant]
  3. LISINOPRIL [Concomitant]
     Indication: BLOOD PRESSURE INCREASED
     Dosage: UNK, UNK
     Dates: end: 20070502
  4. LISINOPRIL [Concomitant]
     Dosage: 20 MG, UNK
     Dates: start: 20070506

REACTIONS (5)
  - ARRHYTHMIA [None]
  - HEART RATE INCREASED [None]
  - HYPERTENSION [None]
  - HYPOTENSION [None]
  - PALPITATIONS [None]
